FAERS Safety Report 6093117-X (Version None)
Quarter: 2009Q1

REPORT INFORMATION
  Report Type: 
  Country: None (occurrence: None)
  Receive Date: 20090226
  Receipt Date: 20090219
  Transmission Date: 20090719
  Serious: Yes (Hospitalization)
  Sender: FDA-Public Use
  Company Number: FR-JNJFOC-20090201320

PATIENT
  Age: 80 Year
  Sex: Female

DRUGS (9)
  1. OFLOCET [Suspect]
     Indication: KLEBSIELLA INFECTION
     Route: 048
  2. CORTANCYL [Suspect]
     Indication: DRUG USE FOR UNKNOWN INDICATION
     Route: 048
  3. CORDARONE [Concomitant]
     Dosage: 1 U
     Route: 048
  4. MINISINTROM [Concomitant]
     Route: 048
  5. TIMOPTIC [Concomitant]
     Indication: GLAUCOMA
     Route: 047
  6. AZOPT [Concomitant]
     Indication: GLAUCOMA
     Dosage: 1 U EYE DROPS
     Route: 047
  7. ANAFRANIL [Concomitant]
     Route: 048
  8. MOPRAL [Concomitant]
     Route: 048
  9. FONZYLANE [Concomitant]

REACTIONS (3)
  - HAEMATOMA [None]
  - PERONEAL NERVE PALSY [None]
  - TENDON RUPTURE [None]
